FAERS Safety Report 23758696 (Version 1)
Quarter: 2024Q2

REPORT INFORMATION
  Report Type: Spontaneous
  Country: US (occurrence: None)
  Receive Date: 20240418
  Receipt Date: 20240418
  Transmission Date: 20240716
  Serious: No
  Sender: FDA-Public Use
  Company Number: US-ROCHE-3363054

PATIENT
  Sex: Female

DRUGS (1)
  1. AVASTIN [Suspect]
     Active Substance: BEVACIZUMAB
     Indication: Product used for unknown indication
     Dosage: STRENGTH-100MG/4ML
     Route: 031

REACTIONS (5)
  - Malaise [Unknown]
  - Balance disorder [Unknown]
  - Dizziness [Unknown]
  - Pain [Unknown]
  - Insomnia [Unknown]
